FAERS Safety Report 6215356-7 (Version None)
Quarter: 2009Q2

REPORT INFORMATION
  Report Type: 
  Country: None (occurrence: None)
  Receive Date: 20090604
  Receipt Date: 20090527
  Transmission Date: 20091009
  Serious: Yes (Other)
  Sender: FDA-Public Use
  Company Number: US-ABBOTT-09P-163-0576276-00

PATIENT
  Sex: Female

DRUGS (4)
  1. RITONAVIR [Suspect]
     Indication: HIV INFECTION
     Route: 048
     Dates: start: 19971202, end: 20020509
  2. STAVUDINE [Concomitant]
     Indication: HIV INFECTION
     Dates: start: 19971202, end: 20020509
  3. DIDANOSINE [Concomitant]
     Indication: HIV INFECTION
     Dates: start: 19971202, end: 20020509
  4. SAQUINAVIR [Concomitant]
     Indication: HIV INFECTION
     Dates: start: 19971202, end: 20020509

REACTIONS (1)
  - ABORTION SPONTANEOUS [None]
